FAERS Safety Report 5385878-X (Version None)
Quarter: 2007Q3

REPORT INFORMATION
  Report Type: 
  Country: None (occurrence: None)
  Receive Date: 20070703
  Receipt Date: 20070425
  Transmission Date: 20080115
  Serious: No
  Sender: FDA-Public Use
  Company Number: 2007PV032856

PATIENT
  Age: 45 Year
  Sex: Male

DRUGS (6)
  1. SYMLIN [Suspect]
     Indication: TYPE 1 DIABETES MELLITUS
     Dosage: 180 MCG;QPM;SC : 120 MCG;BID;SC : 45 MCG;TID;SC : 30 MCG;TID;SC : 15 MCG;TID;SC
     Route: 058
     Dates: end: 20070101
  2. SYMLIN [Suspect]
     Indication: TYPE 1 DIABETES MELLITUS
     Dosage: 180 MCG;QPM;SC : 120 MCG;BID;SC : 45 MCG;TID;SC : 30 MCG;TID;SC : 15 MCG;TID;SC
     Route: 058
     Dates: start: 20070401, end: 20070401
  3. SYMLIN [Suspect]
     Indication: TYPE 1 DIABETES MELLITUS
     Dosage: 180 MCG;QPM;SC : 120 MCG;BID;SC : 45 MCG;TID;SC : 30 MCG;TID;SC : 15 MCG;TID;SC
     Route: 058
     Dates: start: 20070328
  4. SYMLIN [Suspect]
     Indication: TYPE 1 DIABETES MELLITUS
     Dosage: 180 MCG;QPM;SC : 120 MCG;BID;SC : 45 MCG;TID;SC : 30 MCG;TID;SC : 15 MCG;TID;SC
     Route: 058
     Dates: start: 20070401
  5. SYMLIN [Suspect]
     Indication: TYPE 1 DIABETES MELLITUS
     Dosage: 180 MCG;QPM;SC : 120 MCG;BID;SC : 45 MCG;TID;SC : 30 MCG;TID;SC : 15 MCG;TID;SC
     Route: 058
     Dates: start: 20070401
  6. NOVOLOG [Concomitant]

REACTIONS (3)
  - DRUG INEFFECTIVE [None]
  - INCORRECT DOSE ADMINISTERED [None]
  - NAUSEA [None]
